FAERS Safety Report 20888111 (Version 1)
Quarter: 2022Q2

REPORT INFORMATION
  Report Type: Spontaneous
  Country: US (occurrence: US)
  Receive Date: 20220529
  Receipt Date: 20220529
  Transmission Date: 20220720
  Serious: Yes (Other)
  Sender: FDA-Public Use
  Company Number: US-SANOFI-01116433

PATIENT
  Age: 71 Year
  Sex: Female

DRUGS (1)
  1. SOLIQUA 100/33 [Suspect]
     Active Substance: INSULIN GLARGINE\LIXISENATIDE
     Indication: Type 2 diabetes mellitus
     Dosage: 33 IU, QD

REACTIONS (4)
  - Cataract [Unknown]
  - Retinopathy [Unknown]
  - Visual impairment [Unknown]
  - Wrong technique in device usage process [Unknown]
